FAERS Safety Report 15859611 (Version 1)
Quarter: 2019Q1

REPORT INFORMATION
  Report Type: Report from Study
  Country: US (occurrence: US)
  Receive Date: 20190123
  Receipt Date: 20190123
  Transmission Date: 20190417
  Serious: Yes (Other)
  Sender: FDA-Public Use
  Company Number: US-MALLINCKRODT-T201901047

PATIENT
  Age: 9 Month
  Sex: Male

DRUGS (1)
  1. REPOSITORY CORTICOTROPIN INJECTION [Suspect]
     Active Substance: CORTICOTROPIN
     Indication: INFANTILE SPASMS
     Dosage: UNK
     Route: 065

REACTIONS (6)
  - Glucose urine present [Unknown]
  - Pyrexia [Unknown]
  - Blood urine present [Unknown]
  - Diarrhoea [Unknown]
  - Urine ketone body present [Unknown]
  - Injection site reaction [Unknown]
